FAERS Safety Report 5063656-9 (Version None)
Quarter: 2006Q3

REPORT INFORMATION
  Report Type: 
  Country: None (occurrence: None)
  Receive Date: 20060724
  Receipt Date: 20060712
  Transmission Date: 20061208
  Serious: Yes (Disabling, Other)
  Sender: FDA-Public Use
  Company Number: 2004066417

PATIENT
  Age: 64 Year
  Sex: Female
  Weight: 83.0083 kg

DRUGS (8)
  1. LIPITOR [Suspect]
     Indication: BLOOD CHOLESTEROL
     Dosage: (1 IN 1 D), ORAL
     Route: 048
     Dates: start: 20030101, end: 20040101
  2. LIPITOR [Suspect]
     Indication: BLOOD CHOLESTEROL INCREASED
     Dosage: (1 IN 1 D), ORAL
     Route: 048
     Dates: start: 20030101, end: 20040101
  3. LIPITOR [Suspect]
     Indication: HYPERLIPIDAEMIA
     Dosage: (1 IN 1 D), ORAL
     Route: 048
     Dates: start: 20030101, end: 20040101
  4. LIPITOR [Suspect]
     Indication: LOW DENSITY LIPOPROTEIN INCREASED
     Dosage: (1 IN 1 D), ORAL
     Route: 048
     Dates: start: 20030101, end: 20040101
  5. NORVASC [Suspect]
     Indication: BLOOD PRESSURE
     Dates: start: 20040401, end: 20040702
  6. PAXIL [Suspect]
     Indication: DEPRESSION
     Dosage: ORAL
     Route: 048
     Dates: start: 19940101
  7. KLONOPIN [Concomitant]
  8. ADVAIR DISKUS 100/50 [Concomitant]

REACTIONS (27)
  - ARTHRALGIA [None]
  - ARTHRITIS [None]
  - ASTHENIA [None]
  - ASTHMA [None]
  - BLOOD CHOLESTEROL INCREASED [None]
  - BLOOD PRESSURE INADEQUATELY CONTROLLED [None]
  - BURSITIS [None]
  - DRUG INEFFECTIVE [None]
  - EXERCISE LACK OF [None]
  - FALL [None]
  - FATIGUE [None]
  - FIBROMYALGIA [None]
  - GAIT DISTURBANCE [None]
  - INSOMNIA [None]
  - IRRITABLE BOWEL SYNDROME [None]
  - MUSCLE DISORDER [None]
  - MYALGIA [None]
  - NEURALGIA [None]
  - OEDEMA PERIPHERAL [None]
  - PARAESTHESIA [None]
  - RHINITIS ALLERGIC [None]
  - SEBORRHOEIC KERATOSIS [None]
  - SINUS HEADACHE [None]
  - SKIN HYPERPIGMENTATION [None]
  - SKIN LESION [None]
  - SKIN PAPILLOMA [None]
  - TREATMENT NONCOMPLIANCE [None]
